FAERS Safety Report 13906408 (Version 42)
Quarter: 2022Q3

REPORT INFORMATION
  Report Type: Spontaneous
  Country: CA (occurrence: CA)
  Receive Date: 20170825
  Receipt Date: 20220927
  Transmission Date: 20221027
  Serious: Yes (Death, Hospitalization, Other)
  Sender: FDA-Public Use
  Company Number: CA-009507513-0809CAN00001

PATIENT
  Age: 54 Year
  Sex: Male

DRUGS (82)
  1. ISENTRESS [Interacting]
     Active Substance: RALTEGRAVIR POTASSIUM
     Indication: HIV infection
     Dosage: 400 MG, BID (2 EVERY 1 DAY)
     Route: 048
     Dates: start: 20070620
  2. ISENTRESS [Interacting]
     Active Substance: RALTEGRAVIR POTASSIUM
     Indication: Product used for unknown indication
     Dosage: 400 MILLIGRAM, QD , 1 EVERY 1 DAY (QD)
     Route: 065
  3. ISENTRESS [Interacting]
     Active Substance: RALTEGRAVIR POTASSIUM
     Dosage: 2 DOSAGE FORMS, 1 EVERY 1 DAY
     Route: 048
  4. ISENTRESS [Interacting]
     Active Substance: RALTEGRAVIR POTASSIUM
     Dosage: 800 MILLIGRAM, 1 EVERY 1 DAYS
     Route: 048
  5. ISENTRESS [Interacting]
     Active Substance: RALTEGRAVIR POTASSIUM
     Dosage: 400 MILLIGRAM, 1 EVERY 12 HOURS
     Route: 048
  6. ISENTRESS [Interacting]
     Active Substance: RALTEGRAVIR POTASSIUM
     Dosage: 400 MG, 1 EVERY 12 HOURS
     Route: 048
     Dates: start: 20070620
  7. ISENTRESS [Interacting]
     Active Substance: RALTEGRAVIR POTASSIUM
     Dosage: UNK
     Route: 065
  8. ISENTRESS [Interacting]
     Active Substance: RALTEGRAVIR POTASSIUM
     Dosage: UNK
     Route: 048
  9. ISENTRESS [Interacting]
     Active Substance: RALTEGRAVIR POTASSIUM
     Dosage: 400 MICROGRAM,1 EVERY 12 HOURS
     Route: 048
  10. ISENTRESS [Interacting]
     Active Substance: RALTEGRAVIR POTASSIUM
     Dosage: 400 MILLIGRAM, 1 EVERY 12 HOURS
     Route: 048
  11. ISENTRESS [Interacting]
     Active Substance: RALTEGRAVIR POTASSIUM
     Dosage: 400 MG, 2 EVERY 1 DAYS
     Route: 048
     Dates: start: 20070620
  12. ISENTRESS [Interacting]
     Active Substance: RALTEGRAVIR POTASSIUM
     Dosage: 2 DOSAGE FORMS, 1 EVERY 1 DAY
     Route: 048
  13. ISENTRESS [Interacting]
     Active Substance: RALTEGRAVIR POTASSIUM
     Dosage: 400 MICROGRAM, 2 EVERY 1 DAYS
     Route: 048
  14. ISENTRESS [Interacting]
     Active Substance: RALTEGRAVIR POTASSIUM
     Dosage: 400 MILLIGRAM, 1 EVERY 12 HOURS
     Route: 048
  15. ISENTRESS [Interacting]
     Active Substance: RALTEGRAVIR POTASSIUM
     Dosage: 2.0 MILLIGRAM, 1 EVERY 1 DAYS
     Route: 065
  16. ISENTRESS [Interacting]
     Active Substance: RALTEGRAVIR POTASSIUM
     Dosage: 400 ML, 1 EVERY 1 DAY
     Route: 048
  17. ISENTRESS [Interacting]
     Active Substance: RALTEGRAVIR POTASSIUM
     Dosage: 1 DOSAGE FORM, 1 EVERY 12 HOURS
     Route: 048
  18. ATAZANAVIR SULFATE [Interacting]
     Active Substance: ATAZANAVIR SULFATE
     Indication: HIV infection
     Dosage: UNK
     Route: 005
  19. ATAZANAVIR SULFATE [Interacting]
     Active Substance: ATAZANAVIR SULFATE
     Indication: Product used for unknown indication
     Dosage: UNK
     Route: 048
  20. ATAZANAVIR SULFATE [Interacting]
     Active Substance: ATAZANAVIR SULFATE
     Dosage: UNK
     Route: 065
  21. ATAZANAVIR [Interacting]
     Active Substance: ATAZANAVIR
     Indication: HIV infection
     Dosage: UNK
     Route: 005
  22. ATAZANAVIR [Interacting]
     Active Substance: ATAZANAVIR
     Indication: Product used for unknown indication
     Dosage: UNK
     Route: 048
  23. ATAZANAVIR [Interacting]
     Active Substance: ATAZANAVIR
     Dosage: UNK
     Route: 065
  24. BUPROPION HYDROCHLORIDE [Interacting]
     Active Substance: BUPROPION HYDROCHLORIDE
     Indication: Bipolar disorder
     Dosage: UNK
     Route: 048
  25. BUPROPION HYDROCHLORIDE [Interacting]
     Active Substance: BUPROPION HYDROCHLORIDE
     Indication: Product used for unknown indication
  26. BUPROPION HYDROCHLORIDE [Interacting]
     Active Substance: BUPROPION HYDROCHLORIDE
     Indication: Depression
  27. CLONAZEPAM [Interacting]
     Active Substance: CLONAZEPAM
     Indication: Bipolar disorder
     Dosage: UNK
     Route: 048
  28. CLONAZEPAM [Interacting]
     Active Substance: CLONAZEPAM
     Indication: Product used for unknown indication
     Dosage: UNK
     Route: 065
  29. KALETRA [Interacting]
     Active Substance: LOPINAVIR\RITONAVIR
     Indication: HIV infection
     Dosage: UNK
     Route: 048
  30. KALETRA [Interacting]
     Active Substance: LOPINAVIR\RITONAVIR
     Indication: Product used for unknown indication
  31. LAMIVUDINE [Interacting]
     Active Substance: LAMIVUDINE
     Indication: Product used for unknown indication
     Dosage: UNK
     Route: 005
  32. LAMIVUDINE [Interacting]
     Active Substance: LAMIVUDINE
     Indication: HIV infection
     Dosage: UNK
     Route: 065
  33. LOPINAVIR\RITONAVIR [Suspect]
     Active Substance: LOPINAVIR\RITONAVIR
     Indication: HIV infection
     Route: 065
  34. LOPINAVIR\RITONAVIR [Suspect]
     Active Substance: LOPINAVIR\RITONAVIR
     Indication: Product used for unknown indication
  35. QUETIAPINE FUMARATE [Interacting]
     Active Substance: QUETIAPINE FUMARATE
     Indication: HIV infection
     Dosage: UNK
     Route: 048
  36. QUETIAPINE FUMARATE [Interacting]
     Active Substance: QUETIAPINE FUMARATE
     Indication: Bipolar disorder
     Dosage: 400.0 MILLIGRAM, 2 EVERY 1 WEEKS
     Route: 048
  37. QUETIAPINE FUMARATE [Interacting]
     Active Substance: QUETIAPINE FUMARATE
     Indication: Product used for unknown indication
     Dosage: 400.0 MILLIGRAM, 1 EVERY 6 HOURS
     Route: 048
  38. QUETIAPINE FUMARATE [Interacting]
     Active Substance: QUETIAPINE FUMARATE
     Dosage: 2 DOSAGE FORMS, 1 EVERY 1 DAYS
     Route: 048
  39. SERTRALINE [Interacting]
     Active Substance: SERTRALINE HYDROCHLORIDE
     Indication: Bipolar disorder
     Dosage: UNK
     Route: 048
  40. SERTRALINE [Interacting]
     Active Substance: SERTRALINE HYDROCHLORIDE
     Indication: HIV infection
     Dosage: UNK
     Route: 065
  41. SERTRALINE [Interacting]
     Active Substance: SERTRALINE HYDROCHLORIDE
     Indication: Product used for unknown indication
  42. SERTRALINE HYDROCHLORIDE [Interacting]
     Active Substance: SERTRALINE HYDROCHLORIDE
     Indication: Bipolar disorder
     Dosage: UNK
     Route: 048
  43. SERTRALINE HYDROCHLORIDE [Interacting]
     Active Substance: SERTRALINE HYDROCHLORIDE
     Indication: Product used for unknown indication
     Dosage: 400 MG, 1 EVERY 12 HOURS
     Route: 048
  44. SERTRALINE HYDROCHLORIDE [Interacting]
     Active Substance: SERTRALINE HYDROCHLORIDE
     Indication: HIV infection
     Dosage: UNK
     Route: 065
  45. SUSTIVA [Interacting]
     Active Substance: EFAVIRENZ
     Indication: HIV infection
     Dosage: 800 MILLIGRAM, 1 EVERY 1 DAYS
     Route: 048
  46. SUSTIVA [Interacting]
     Active Substance: EFAVIRENZ
     Indication: Product used for unknown indication
     Dosage: 400 MILLIGRAM, 2 EVERY 1 DAYS
     Route: 048
  47. SUSTIVA [Interacting]
     Active Substance: EFAVIRENZ
     Dosage: 400 MILLIGRAM, 2 EVERY 1 DAYS
     Route: 065
  48. VALPROIC ACID [Interacting]
     Active Substance: VALPROIC ACID
     Indication: Bipolar disorder
     Dosage: UNK
     Route: 048
  49. VALPROIC ACID [Interacting]
     Active Substance: VALPROIC ACID
     Indication: Product used for unknown indication
     Dosage: UNK
     Route: 065
  50. ZOPICLONE [Interacting]
     Active Substance: ZOPICLONE
     Indication: Bipolar disorder
     Dosage: UNK
     Route: 048
  51. ZOPICLONE [Interacting]
     Active Substance: ZOPICLONE
     Indication: Product used for unknown indication
     Dosage: 10 MG
     Route: 048
  52. ZOPICLONE [Interacting]
     Active Substance: ZOPICLONE
     Dosage: UNK
     Route: 065
  53. CITALOPRAM HYDROBROMIDE [Suspect]
     Active Substance: CITALOPRAM HYDROBROMIDE
     Indication: Psychotic disorder
     Route: 065
  54. CITALOPRAM HYDROBROMIDE [Suspect]
     Active Substance: CITALOPRAM HYDROBROMIDE
     Indication: Depression
  55. EMTRIVA [Concomitant]
     Active Substance: EMTRICITABINE
     Indication: Product used for unknown indication
     Route: 065
  56. RISPERIDONE [Suspect]
     Active Substance: RISPERIDONE
     Indication: Depression
     Route: 065
  57. RITONAVIR [Suspect]
     Active Substance: RITONAVIR
     Indication: HIV infection
     Route: 065
  58. RITONAVIR [Suspect]
     Active Substance: RITONAVIR
     Indication: Depression
  59. VIREAD [Suspect]
     Active Substance: TENOFOVIR DISOPROXIL FUMARATE
     Indication: HIV infection
     Route: 048
  60. ABACAVIR SULFATE [Suspect]
     Active Substance: ABACAVIR SULFATE
     Indication: HIV infection
     Route: 065
  61. DARUNAVIR [Suspect]
     Active Substance: DARUNAVIR
     Indication: HIV infection
     Route: 065
  62. DELAVIRDINE MESYLATE [Suspect]
     Active Substance: DELAVIRDINE MESYLATE
     Indication: HIV infection
     Route: 065
  63. DIDANOSINE [Suspect]
     Active Substance: DIDANOSINE
     Indication: HIV infection
     Route: 065
  64. ETRAVIRINE [Suspect]
     Active Substance: ETRAVIRINE
     Indication: HIV infection
     Route: 048
  65. INDINAVIR SULFATE [Suspect]
     Active Substance: INDINAVIR SULFATE
     Indication: HIV infection
     Route: 048
  66. INTELENCE [Suspect]
     Active Substance: ETRAVIRINE
     Indication: HIV infection
     Route: 048
  67. LOPINAVIR [Suspect]
     Active Substance: LOPINAVIR
     Indication: HIV infection
     Route: 065
  68. NELFINAVIR MESYLATE [Suspect]
     Active Substance: NELFINAVIR MESYLATE
     Indication: HIV infection
     Route: 065
  69. NEVIRAPINE [Suspect]
     Active Substance: NEVIRAPINE
     Indication: HIV infection
     Route: 065
  70. NORVIR [Suspect]
     Active Substance: RITONAVIR
     Indication: HIV infection
     Route: 065
  71. SAQUINAVIR [Suspect]
     Active Substance: SAQUINAVIR
     Indication: HIV infection
     Route: 048
  72. VIDEX EC [Suspect]
     Active Substance: DIDANOSINE
     Indication: HIV infection
     Route: 048
  73. ZERIT [Suspect]
     Active Substance: STAVUDINE
     Indication: HIV infection
     Route: 065
  74. ZIDOVUDINE [Suspect]
     Active Substance: ZIDOVUDINE
     Indication: HIV infection
     Route: 048
  75. BUPROPION [Interacting]
     Active Substance: BUPROPION
     Indication: Bipolar disorder
     Route: 048
  76. BUPROPION [Interacting]
     Active Substance: BUPROPION
     Indication: Product used for unknown indication
  77. QUETIAPINE [Suspect]
     Active Substance: QUETIAPINE
     Indication: Product used for unknown indication
  78. ENFUVIRTIDE [Concomitant]
     Active Substance: ENFUVIRTIDE
     Indication: HIV infection
  79. ENFUVIRTIDE [Concomitant]
     Active Substance: ENFUVIRTIDE
     Indication: Product used for unknown indication
  80. ENFUVIRTIDE [Concomitant]
     Active Substance: ENFUVIRTIDE
     Indication: HIV infection
     Dosage: UNK
     Route: 058
  81. ENFUVIRTIDE [Concomitant]
     Active Substance: ENFUVIRTIDE
     Indication: Product used for unknown indication
     Dosage: UNK
     Route: 048
  82. ENFUVIRTIDE [Concomitant]
     Active Substance: ENFUVIRTIDE
     Dosage: UNK
     Route: 065

REACTIONS (20)
  - Depression [Fatal]
  - Drug interaction [Fatal]
  - Loss of personal independence in daily activities [Fatal]
  - Anxiety [Recovered/Resolved]
  - Depression suicidal [Recovered/Resolved]
  - Depressive symptom [Recovered/Resolved]
  - Paranoia [Recovered/Resolved]
  - Suicidal ideation [Recovered/Resolved]
  - Psychomotor retardation [Recovered/Resolved]
  - Psychomotor skills impaired [Recovered/Resolved]
  - Psychotic disorder [Recovered/Resolved]
  - Mitochondrial toxicity [Unknown]
  - Diplopia [Unknown]
  - Eyelid ptosis [Unknown]
  - Lipodystrophy acquired [Unknown]
  - Intentional product use issue [Fatal]
  - Incorrect route of product administration [Fatal]
  - Product use in unapproved indication [Fatal]
  - Prescribed overdose [Fatal]
  - Off label use [Fatal]
